FAERS Safety Report 11182688 (Version 2)
Quarter: 2015Q3

REPORT INFORMATION
  Report Type: Spontaneous
  Country: RU (occurrence: RU)
  Receive Date: 20150611
  Receipt Date: 20150929
  Transmission Date: 20151125
  Serious: Yes (Death, Congenital Anomaly, Other)
  Sender: FDA-Public Use
  Company Number: RU-UCBSA-2015018958

PATIENT

DRUGS (1)
  1. KEPPRA [Suspect]
     Active Substance: LEVETIRACETAM
     Indication: EPILEPSY
     Dosage: 2000 MG, ONCE DAILY (QD)
     Route: 064

REACTIONS (4)
  - Premature baby [Unknown]
  - Multiple congenital abnormalities [Fatal]
  - Conjoined twins [Unknown]
  - Foetal exposure during pregnancy [Unknown]
